FAERS Safety Report 7637917-0 (Version None)
Quarter: 2011Q3

REPORT INFORMATION
  Report Type: 
  Country: None (occurrence: None)
  Receive Date: 20110712
  Receipt Date: 20110628
  Transmission Date: 20111222
  Serious: Yes (Other)
  Sender: FDA-Public Use
  Company Number: 2011029022

PATIENT
  Age: 53 Year
  Sex: Female

DRUGS (2)
  1. ZEMAIRA [Suspect]
     Indication: ALPHA-1 ANTI-TRYPSIN DEFICIENCY
     Dosage: SEE IMAGE
     Route: 042
     Dates: start: 20110617
  2. ZEMAIRA [Suspect]
     Indication: ALPHA-1 ANTI-TRYPSIN DEFICIENCY
     Dosage: SEE IMAGE
     Route: 042
     Dates: start: 20110429

REACTIONS (7)
  - PETECHIAE [None]
  - EPSTEIN-BARR VIRUS TEST POSITIVE [None]
  - NO THERAPEUTIC RESPONSE [None]
  - PYREXIA [None]
  - TRANSMISSION OF AN INFECTIOUS AGENT VIA A MEDICINAL PRODUCT [None]
  - INFECTIOUS MONONUCLEOSIS [None]
  - RASH [None]
